FAERS Safety Report 9958949 (Version 2)
Quarter: 2014Q1

REPORT INFORMATION
  Report Type: Report from Study
  Country: US (occurrence: US)
  Receive Date: 20140305
  Receipt Date: 20140305
  Transmission Date: 20141002
  Serious: No
  Sender: FDA-Public Use
  Company Number: US-ABBVIE-13P-163-1082286-00

PATIENT
  Age: 70 Year
  Sex: Male

DRUGS (19)
  1. HUMIRA [Suspect]
     Indication: CROHN^S DISEASE
     Dosage: LOADING DOSE
     Route: 058
     Dates: start: 20130401, end: 20130401
  2. HUMIRA [Suspect]
     Dosage: LOADING DOSE - ONCE
     Route: 058
     Dates: start: 20130415, end: 20130415
  3. HUMIRA [Suspect]
     Route: 058
  4. VALSARTAN HCT [Concomitant]
     Indication: BLOOD PRESSURE
     Dosage: 320/25 MG DAILY
  5. VALSARTAN HCT [Concomitant]
     Indication: DIURETIC THERAPY
  6. FENOFIBRATE [Concomitant]
     Indication: PRODUCT USED FOR UNKNOWN INDICATION
     Dosage: 160 MG DAILY
  7. ATENOLOL [Concomitant]
     Indication: HEART RATE ABNORMAL
     Dosage: 100 MG DAILY
  8. FOLIC ACID [Concomitant]
     Indication: PRODUCT USED FOR UNKNOWN INDICATION
     Dosage: 1 MG DAILY
  9. ALLOPURINOL [Concomitant]
     Indication: BLOOD URIC ACID ABNORMAL
     Dosage: 300 MG DAILY
  10. ALLOPURINOL [Concomitant]
     Indication: GOUT
  11. ASA [Concomitant]
     Indication: PRODUCT USED FOR UNKNOWN INDICATION
  12. SIMVASTATIN [Concomitant]
     Indication: BLOOD CHOLESTEROL
  13. TRAZODONE [Concomitant]
     Indication: INSOMNIA
  14. PROZAC [Concomitant]
     Indication: RELAXATION THERAPY
     Dosage: 20 MG DAILY
  15. MULTIVITAMIN [Concomitant]
     Indication: PRODUCT USED FOR UNKNOWN INDICATION
  16. SUPER B [Concomitant]
     Indication: PRODUCT USED FOR UNKNOWN INDICATION
  17. POTASSIUM BROMIDE [Concomitant]
     Indication: BLOOD POTASSIUM DECREASED
  18. SPIRIVA [Concomitant]
     Indication: CHRONIC OBSTRUCTIVE PULMONARY DISEASE
  19. BABY ASPIRIN [Concomitant]
     Indication: PRODUCT USED FOR UNKNOWN INDICATION

REACTIONS (7)
  - Therapeutic response unexpected [Recovering/Resolving]
  - Local swelling [Unknown]
  - Joint swelling [Unknown]
  - Musculoskeletal pain [Unknown]
  - Back pain [Unknown]
  - Unevaluable event [Unknown]
  - Blood pressure increased [Unknown]
